FAERS Safety Report 4452391-3 (Version None)
Quarter: 2004Q3

REPORT INFORMATION
  Report Type: 
  Country: None (occurrence: None)
  Receive Date: 20040917
  Receipt Date: 20040107
  Transmission Date: 20050211
  Serious: Yes (Other)
  Sender: FDA-Public Use
  Company Number: PHEH2004US00595

PATIENT
  Age: 70 Year
  Sex: Male

DRUGS (4)
  1. ZOMETA [Suspect]
     Indication: MULTIPLE MYELOMA
     Dosage: 4 MG EVERY MONTH
     Route: 042
     Dates: start: 20030101, end: 20040115
  2. SIMVASTATIN [Concomitant]
  3. PRILOSEC [Concomitant]
  4. LOCAL ANAESTHETICS [Concomitant]

REACTIONS (11)
  - CONTUSION [None]
  - ENDODONTIC PROCEDURE [None]
  - EXOSTOSIS [None]
  - GINGIVAL PAIN [None]
  - IMPAIRED HEALING [None]
  - LOSS OF CONSCIOUSNESS [None]
  - OSTEONECROSIS [None]
  - PAIN IN JAW [None]
  - PRIMARY SEQUESTRUM [None]
  - TOOTH EXTRACTION [None]
  - TOOTHACHE [None]
